FAERS Safety Report 6964812-2 (Version None)
Quarter: 2010Q3

REPORT INFORMATION
  Report Type: 
  Country: None (occurrence: None)
  Receive Date: 20100903
  Receipt Date: 20100830
  Transmission Date: 20110219
  Serious: Yes (Other)
  Sender: FDA-Public Use
  Company Number: US-KINGPHARMUSA00001-K201001098

PATIENT
  Age: 40 Year
  Sex: Female

DRUGS (6)
  1. SEPTRA [Suspect]
     Indication: INFECTION PROPHYLAXIS
     Dosage: UNK
  2. VALACYCLOVIR [Concomitant]
     Dosage: UNK
  3. FLUCONAZOLE [Concomitant]
     Dosage: UNK
  4. CYCLOSPORINE [Concomitant]
     Dosage: UNK
  5. REGULAR INSULIN [Concomitant]
     Dosage: UNK
  6. HEPARIN [Concomitant]
     Dosage: UNK

REACTIONS (3)
  - ACUTE GENERALISED EXANTHEMATOUS PUSTULOSIS [None]
  - RASH ERYTHEMATOUS [None]
  - RASH PUSTULAR [None]
